FAERS Safety Report 7446483-4 (Version None)
Quarter: 2011Q2

REPORT INFORMATION
  Report Type: 
  Country: None (occurrence: None)
  Receive Date: 20110429
  Receipt Date: 20100712
  Transmission Date: 20111010
  Serious: No
  Sender: FDA-Public Use
  Company Number: US-ASTRAZENECA-2010SE32461

PATIENT
  Age: 22754 Day
  Sex: Female
  Weight: 56.7 kg

DRUGS (1)
  1. NEXIUM [Suspect]
     Indication: GASTROOESOPHAGEAL REFLUX DISEASE
     Route: 048
     Dates: start: 20030101

REACTIONS (5)
  - JOINT SPRAIN [None]
  - SURGERY [None]
  - CONTUSION [None]
  - LIGAMENT RUPTURE [None]
  - THROMBOSIS [None]
